FAERS Safety Report 9840505 (Version 1)
Quarter: 2013Q4

REPORT INFORMATION
  Report Type: Spontaneous
  Country: US (occurrence: None)
  Receive Date: 20131211
  Receipt Date: 20131211
  Transmission Date: 20140711
  Serious: Yes (Hospitalization)
  Sender: FDA-Public Use
  Company Number: TKT01200700164

PATIENT
  Age: 10 Year
  Sex: Male
  Weight: 31.3 kg

DRUGS (4)
  1. IDURSULFASE (IDURSULFASE) (0.5 MILLIGRAM(S)/KILOGRAM, CONCENTRATE [Suspect]
     Indication: MUCOPOLYSACCHARIDOSIS II
     Dosage: 1 IN 1 WK
     Route: 041
     Dates: start: 20061009
  2. ROBINUL (GLYCOPYRRONIUM BROMIDE) (1 MILLIGRAM) [Concomitant]
  3. ZANTAC (RANITIDINE HYDROCHLORIDE) [Concomitant]
  4. MOTRIN (IBUPROFEN) (250 MILLIGRAM) [Concomitant]

REACTIONS (2)
  - Subdural haematoma [None]
  - Post-traumatic epilepsy [None]
